FAERS Safety Report 7399125-0 (Version None)
Quarter: 2011Q1

REPORT INFORMATION
  Report Type: 
  Country: None (occurrence: None)
  Receive Date: 20110328
  Receipt Date: 20110314
  Transmission Date: 20110831
  Serious: Yes (Hospitalization)
  Sender: FDA-Public Use
  Company Number: 2011001215

PATIENT
  Age: 41 Year
  Sex: Female

DRUGS (11)
  1. ERLOTINIB (ERLOTINIB) (TABLET) [Suspect]
  2. ERLOTINIB (ERLOTINIB) (TABLET) [Suspect]
  3. ERLOTINIB (ERLOTINIB) (TABLET) [Suspect]
  4. GEMCITABINE [Suspect]
     Indication: NON-SMALL CELL LUNG CANCER
     Dosage: (2211 MG,D1,D8,Q28 DAYS),INTRAVENOUS DRIP
     Dates: start: 20100421
  5. ERLOTINIB (ERLOTINIB) (TABLET) [Suspect]
  6. ERLOTINIB (ERLOTINIB) (TABLET) [Suspect]
  7. ERLOTINIB (ERLOTINIB) (TABLET) [Suspect]
  8. ERLOTINIB (ERLOTINIB) (TABLET) (ERLOTINIB) [Suspect]
     Indication: NON-SMALL CELL LUNG CANCER
     Dosage: 150 MG, QD, ORAL
     Route: 048
     Dates: start: 20100505
  9. ERLOTINIB (ERLOTINIB) (TABLET) [Suspect]
  10. ERLOTINIB (ERLOTINIB) (TABLET) [Suspect]
  11. CARBOPLATIN [Concomitant]
     Indication: NON-SMALL CELL LUNG CANCER
     Dosage: (851 MG,1 IN 28 DAY), INTRAVENOUS DRIP
     Dates: start: 20100421

REACTIONS (6)
  - NEOPLASM MALIGNANT [None]
  - HEADACHE [None]
  - INTERNATIONAL NORMALISED RATIO INCREASED [None]
  - THROMBOCYTOPENIA [None]
  - NON-SMALL CELL LUNG CANCER STAGE IV [None]
  - ACTIVATED PARTIAL THROMBOPLASTIN TIME PROLONGED [None]
